FAERS Safety Report 10690131 (Version 1)
Quarter: 2015Q1

REPORT INFORMATION
  Report Type: Spontaneous
  Country: US (occurrence: US)
  Receive Date: 20150105
  Receipt Date: 20150105
  Transmission Date: 20150720
  Serious: No
  Sender: FDA-Public Use
  Company Number: US-009507513-1501USA000342

PATIENT
  Age: 30 Year
  Sex: Female
  Weight: 75.74 kg

DRUGS (2)
  1. NEXPLANON [Suspect]
     Active Substance: ETONOGESTREL
     Indication: CONTRACEPTION
     Dosage: UNK
     Route: 059
     Dates: start: 20131028
  2. LITHEUM [Concomitant]
     Dosage: UNK

REACTIONS (2)
  - Device kink [Unknown]
  - Device breakage [Unknown]

NARRATIVE: CASE EVENT DATE: 201410
